FAERS Safety Report 7559515-X (Version None)
Quarter: 2011Q2

REPORT INFORMATION
  Report Type: 
  Country: None (occurrence: None)
  Receive Date: 20110621
  Receipt Date: 20110615
  Transmission Date: 20111010
  Serious: Yes (Hospitalization)
  Sender: FDA-Public Use
  Company Number: US-SANOFI-AVENTIS-2011SA038137

PATIENT
  Age: 64 Year
  Sex: Male

DRUGS (1)
  1. MULTAQ [Suspect]
     Route: 048

REACTIONS (4)
  - FLUID RETENTION [None]
  - ATRIAL FIBRILLATION [None]
  - WEIGHT INCREASED [None]
  - RENAL FAILURE ACUTE [None]
